FAERS Safety Report 5552972-X (Version None)
Quarter: 2007Q4

REPORT INFORMATION
  Report Type: 
  Country: None (occurrence: None)
  Receive Date: 20071207
  Receipt Date: 20071204
  Transmission Date: 20080405
  Serious: Yes (Other)
  Sender: FDA-Public Use
  Company Number: 2007336720

PATIENT
  Age: 21 Year
  Sex: Female
  Weight: 104.3273 kg

DRUGS (1)
  1. LISTERINE WHITENING QUICK DISSOLVING STRIPS (NO ACTIVE INGREDIENT) [Suspect]
     Dosage: 1 STRIP ONCE, ORAL
     Route: 048
     Dates: start: 20071202, end: 20071202

REACTIONS (3)
  - GINGIVAL BLEEDING [None]
  - GINGIVAL BLISTER [None]
  - GINGIVAL PAIN [None]
